FAERS Safety Report 4971209-3 (Version None)
Quarter: 2006Q1

REPORT INFORMATION
  Report Type: 
  Country: None (occurrence: None)
  Receive Date: 20060216
  Receipt Date: 20050222
  Transmission Date: 20060701
  Serious: Yes (Hospitalization)
  Sender: FDA-Public Use
  Company Number: 200502IM000035

PATIENT
  Age: 51 Year
  Sex: Male
  Weight: 83.4619 kg

DRUGS (16)
  1. INTERFERON GAMMA-1B [Suspect]
     Indication: HEPATITIS C
     Dosage: 100 UG, TIW, SUBCUTANEOUS ; 50 UG, TIW, SUBCUTANEOUS
     Route: 058
     Dates: start: 20041130, end: 20050222
  2. INTERFERON GAMMA-1B [Suspect]
     Indication: HEPATITIS C
     Dosage: 100 UG, TIW, SUBCUTANEOUS ; 50 UG, TIW, SUBCUTANEOUS
     Route: 058
     Dates: start: 20050311
  3. INTERFERON ALFACON-1 [Suspect]
     Indication: HEPATITIS C
     Dosage: 15 UG, QD, SUBCUTANEOUS ; 9 UG, QD, SUBCUTANEOUS
     Route: 058
     Dates: start: 20041130, end: 20050222
  4. INTERFERON ALFACON-1 [Suspect]
     Indication: HEPATITIS C
     Dosage: 15 UG, QD, SUBCUTANEOUS ; 9 UG, QD, SUBCUTANEOUS
     Route: 058
     Dates: start: 20050311
  5. RIBAVIRIN [Suspect]
     Indication: HEPATITIS C
     Dosage: 1200 MG, QD, ORAL ; 600 MG, QD, ORAL
     Route: 048
     Dates: start: 20041130, end: 20050222
  6. RIBAVIRIN [Suspect]
     Indication: HEPATITIS C
     Dosage: 1200 MG, QD, ORAL ; 600 MG, QD, ORAL
     Route: 048
     Dates: start: 20050311
  7. PEPTO-BISMOL [Suspect]
     Indication: NAUSEA
     Dosage: 3 CC, PRN, ORAL
     Route: 048
     Dates: start: 20050201, end: 20050201
  8. PREVACID [Concomitant]
  9. PAXIL [Concomitant]
  10. ALBUTEROL SULFATE AUTOHALER [Concomitant]
  11. TYLENOL [Concomitant]
  12. MIRALAX [Concomitant]
  13. MEGACE [Concomitant]
  14. IBUPROFEN [Concomitant]
  15. METAMUCIL [Concomitant]
  16. ULTRAM [Concomitant]

REACTIONS (3)
  - ASTHENIA [None]
  - DEPRESSION [None]
  - MELAENA [None]
